FAERS Safety Report 7881534-4 (Version None)
Quarter: 2011Q4

REPORT INFORMATION
  Report Type: 
  Country: None (occurrence: None)
  Receive Date: 20111101
  Receipt Date: 20110526
  Transmission Date: 20120403
  Serious: No
  Sender: FDA-Public Use
  Company Number: US-AMGEN-USASP2011027488

PATIENT
  Age: 64 Year
  Sex: Female
  Weight: 65.306 kg

DRUGS (5)
  1. ENBREL [Suspect]
     Indication: PRODUCT USED FOR UNKNOWN INDICATION
     Dosage: 50 MG, QWK
  2. CELEBREX [Concomitant]
     Dosage: 100 MG, UNK
  3. VITAMIN D [Concomitant]
     Dosage: 5000 IU, UNK
  4. SYNTHROID [Concomitant]
     Dosage: 100 MUG, UNK
  5. CALCIUM + VITAMIN D [Concomitant]

REACTIONS (2)
  - RASH [None]
  - HERPES ZOSTER [None]
